FAERS Safety Report 8175988-6 (Version None)
Quarter: 2012Q1

REPORT INFORMATION
  Report Type: 
  Country: None (occurrence: None)
  Receive Date: 20120301
  Receipt Date: 20120227
  Transmission Date: 20120608
  Serious: No
  Sender: FDA-Public Use
  Company Number: US-PFIZER INC-2012051604

PATIENT
  Sex: Female

DRUGS (2)
  1. ARTHROTEC [Suspect]
     Dosage: UNK
  2. ARTHROTEC [Suspect]
     Dosage: UNK
     Dates: start: 20120227

REACTIONS (8)
  - EPISTAXIS [None]
  - MENTAL DISORDER [None]
  - COUGH [None]
  - RHINORRHOEA [None]
  - ACTIVITIES OF DAILY LIVING IMPAIRED [None]
  - MALAISE [None]
  - NASOPHARYNGITIS [None]
  - VOMITING [None]
